FAERS Safety Report 6250052-1 (Version None)
Quarter: 2009Q2

REPORT INFORMATION
  Report Type: 
  Country: None (occurrence: None)
  Receive Date: 20090629
  Receipt Date: 20090623
  Transmission Date: 20091009
  Serious: Yes (Hospitalization, Other)
  Sender: FDA-Public Use
  Company Number: US-AMGEN-STX352861

PATIENT
  Sex: Male

DRUGS (4)
  1. SENSIPAR [Suspect]
     Indication: DRUG USE FOR UNKNOWN INDICATION
     Dates: start: 20090617, end: 20090618
  2. ZOMETA [Concomitant]
  3. LASIX [Concomitant]
  4. PAMIDRONATE DISODIUM [Concomitant]

REACTIONS (8)
  - BLOOD PARATHYROID HORMONE INCREASED [None]
  - FLUID OVERLOAD [None]
  - GENERAL PHYSICAL HEALTH DETERIORATION [None]
  - HEPATIC MASS [None]
  - HYPOPHAGIA [None]
  - HYPOXIA [None]
  - MALAISE [None]
  - PARATHYROID TUMOUR MALIGNANT [None]
